FAERS Safety Report 8412568-9 (Version None)
Quarter: 2012Q2

REPORT INFORMATION
  Report Type: 
  Country: None (occurrence: None)
  Receive Date: 20120605
  Receipt Date: 20120521
  Transmission Date: 20120825
  Serious: No
  Sender: FDA-Public Use
  Company Number: US-AMGEN-USASP2012031765

PATIENT
  Age: 58 Year
  Sex: Male

DRUGS (2)
  1. ENBREL [Suspect]
     Indication: RHEUMATOID ARTHRITIS
     Dosage: 50 MG, QWK
     Dates: start: 20070926, end: 20120503
  2. NOVOCAIN [Concomitant]
     Dosage: UNK

REACTIONS (5)
  - DEVICE DAMAGE [None]
  - MUSCLE SPASMS [None]
  - DYSKINESIA [None]
  - RHEUMATOID ARTHRITIS [None]
  - RESTLESSNESS [None]
